FAERS Safety Report 8197950-X (Version None)
Quarter: 2012Q1

REPORT INFORMATION
  Report Type: 
  Country: None (occurrence: None)
  Receive Date: 20120309
  Receipt Date: 20120223
  Transmission Date: 20120608
  Serious: Yes (Hospitalization)
  Sender: FDA-Public Use
  Company Number: US-AMGEN-USASP2011064891

PATIENT
  Age: 83 Year
  Sex: Female
  Weight: 80.363 kg

DRUGS (10)
  1. WARFARIN SODIUM [Concomitant]
  2. HYDROCODONE BITARTRATE [Concomitant]
  3. SYNTHROID [Concomitant]
  4. LYRICA [Concomitant]
  5. ALPRAZOLAM [Concomitant]
  6. GLIMEPIRIDE [Concomitant]
  7. FEMARA [Concomitant]
  8. XGEVA [Suspect]
     Indication: METASTASES TO BONE
     Dosage: 120 MG, Q4WK
     Route: 058
     Dates: start: 20110804
  9. CELEBREX [Concomitant]
  10. DILTIAZEM HCL [Concomitant]

REACTIONS (3)
  - FATIGUE [None]
  - HYPOCALCAEMIA [None]
  - DIARRHOEA [None]
